FAERS Safety Report 16659346 (Version 2)
Quarter: 2020Q2

REPORT INFORMATION
  Report Type: Spontaneous
  Country: ES (occurrence: ES)
  Receive Date: 20190802
  Receipt Date: 20200506
  Transmission Date: 20200713
  Serious: Yes (Other)
  Sender: FDA-Public Use
  Company Number: ES-AUROBINDO-AUR-APL-2019-044619

PATIENT
  Age: 36 Year
  Sex: Female

DRUGS (2)
  1. DEXKETOPROFEN [Interacting]
     Active Substance: DEXKETOPROFEN
     Indication: FIBROMYALGIA
     Dosage: UNK
     Route: 048
     Dates: start: 201907, end: 20190704
  2. IBUPROFEN. [Suspect]
     Active Substance: IBUPROFEN
     Indication: FIBROMYALGIA
     Dosage: UNK
     Route: 048
     Dates: start: 201907, end: 20190704

REACTIONS (2)
  - Haematemesis [Unknown]
  - Product administration error [Unknown]

NARRATIVE: CASE EVENT DATE: 20190704
